FAERS Safety Report 11269954 (Version 1)
Quarter: 2015Q3

REPORT INFORMATION
  Report Type: Spontaneous
  Country: US (occurrence: None)
  Receive Date: 20150713
  Receipt Date: 20150713
  Transmission Date: 20151125
  Serious: Yes (Life-Threatening)
  Sender: FDA-Public Use
  Company Number: None

PATIENT
  Age: 70 Year
  Sex: Female
  Weight: 101.4 kg

DRUGS (2)
  1. SENSORCAINE MPF [Suspect]
     Active Substance: BUPIVACAINE HYDROCHLORIDE
     Indication: NERVE BLOCK
     Dosage: 20 ML?X 1 AS 5ML INCREMENTS ?VIA FEMORAL NERVE BLOCK
     Dates: start: 20150427
  2. SENSORCAINE MPF [Suspect]
     Active Substance: BUPIVACAINE HYDROCHLORIDE
     Indication: NERVE BLOCK
     Dosage: 20 ML?X 1 AS 5ML INCREMENTS ?VIA FEMORAL NERVE BLOCK
     Dates: start: 20150427

REACTIONS (3)
  - Unresponsive to stimuli [None]
  - Incorrect route of drug administration [None]
  - Seizure [None]

NARRATIVE: CASE EVENT DATE: 20150427
